FAERS Safety Report 24852714 (Version 1)
Quarter: 2025Q1

REPORT INFORMATION
  Report Type: Spontaneous
  Country: US (occurrence: US)
  Receive Date: 20250116
  Receipt Date: 20250116
  Transmission Date: 20250408
  Serious: Yes (Other)
  Sender: MERCK
  Company Number: US-009507513-2501USA003196

PATIENT
  Age: 28 Year
  Sex: Female

DRUGS (6)
  1. KEYTRUDA [Suspect]
     Active Substance: PEMBROLIZUMAB
     Indication: Adrenal gland cancer
     Dosage: UNK, EVERY 6 WEEKS
     Route: 065
     Dates: start: 20241021
  2. CABOMETYX [Suspect]
     Active Substance: CABOZANTINIB S-MALATE
     Indication: Adrenal gland cancer
     Dosage: 40 MILLIGRAM, QD
     Route: 065
     Dates: start: 20241021
  3. CABOMETYX [Suspect]
     Active Substance: CABOZANTINIB S-MALATE
     Dosage: 40 MILLIGRAM, QOD
     Route: 065
     Dates: start: 20241104
  4. CABOMETYX [Suspect]
     Active Substance: CABOZANTINIB S-MALATE
     Dosage: 40 MILLIGRAM, QD
     Route: 065
     Dates: start: 20241111
  5. ELIQUIS [Concomitant]
     Active Substance: APIXABAN
  6. JENCYCLA [Concomitant]
     Active Substance: NORETHINDRONE

REACTIONS (11)
  - Hemiplegia [Recovered/Resolved]
  - Fatigue [Recovered/Resolved]
  - Taste disorder [Not Recovered/Not Resolved]
  - Dizziness [Not Recovered/Not Resolved]
  - Headache [Not Recovered/Not Resolved]
  - Blister [Recovered/Resolved]
  - Rash [Recovered/Resolved]
  - Hepatic enzyme increased [Not Recovered/Not Resolved]
  - Brain fog [Unknown]
  - Memory impairment [Unknown]
  - Product use in unapproved indication [Unknown]

NARRATIVE: CASE EVENT DATE: 20240101
